FAERS Safety Report 17046975 (Version 1)
Quarter: 2019Q4

REPORT INFORMATION
  Report Type: Spontaneous
  Country: US (occurrence: US)
  Receive Date: 20191119
  Receipt Date: 20191119
  Transmission Date: 20200122
  Serious: No
  Sender: FDA-Public Use
  Company Number: US-ACCORD-144128

PATIENT
  Age: 55 Year
  Sex: Male
  Weight: 131.54 kg

DRUGS (2)
  1. HYDROCHLOROTHIAZIDE ACCORD [Suspect]
     Active Substance: HYDROCHLOROTHIAZIDE
     Indication: HYPERTENSION
     Dosage: 12.5 THEN LATER 25 MG
     Route: 048
     Dates: start: 20180530, end: 201812
  2. HYDROCODONE/PARACETAMOL [Concomitant]
     Indication: PAIN
     Dosage: 10 MG/325 MG Q8H FOR PAIN

REACTIONS (2)
  - Breast pain [Not Recovered/Not Resolved]
  - Gynaecomastia [Not Recovered/Not Resolved]

NARRATIVE: CASE EVENT DATE: 201809
